FAERS Safety Report 14346686 (Version 2)
Quarter: 2018Q1

REPORT INFORMATION
  Report Type: Spontaneous
  Country: US (occurrence: US)
  Receive Date: 20180103
  Receipt Date: 20180209
  Transmission Date: 20180509
  Serious: No
  Sender: FDA-Public Use
  Company Number: US-TEVA-2017-US-833723

PATIENT
  Sex: Male

DRUGS (1)
  1. METHYLPHENIDATE. [Suspect]
     Active Substance: METHYLPHENIDATE

REACTIONS (5)
  - Drug ineffective [Unknown]
  - Product quality issue [Unknown]
  - Medication residue present [Unknown]
  - Product solubility abnormal [Unknown]
  - Wrong technique in product usage process [Unknown]
